FAERS Safety Report 12445331 (Version 1)
Quarter: 2016Q2

REPORT INFORMATION
  Report Type: Spontaneous
  Country: ES (occurrence: ES)
  Receive Date: 20160607
  Receipt Date: 20160607
  Transmission Date: 20160815
  Serious: Yes (Hospitalization)
  Sender: FDA-Public Use
  Company Number: PHHY2016ES074659

PATIENT
  Age: 86 Year
  Sex: Male

DRUGS (5)
  1. DISTRANEURIN [Interacting]
     Active Substance: CLOMETHIAZOLE
     Indication: DEMENTIA
     Dosage: UNK UNK, BID
     Route: 048
     Dates: start: 201402, end: 20150429
  2. MADOPAR [Interacting]
     Active Substance: BENSERAZIDE HYDROCHLORIDE\LEVODOPA
     Indication: DEMENTIA
     Dosage: 1 DF, QD
     Route: 048
     Dates: start: 20140201, end: 20150429
  3. QUETIAPINA STADA [Concomitant]
     Indication: DISORIENTATION
     Dosage: 25 MG, BID
     Route: 048
     Dates: start: 20150424, end: 20150429
  4. QUETIAPINA STADA [Interacting]
     Active Substance: QUETIAPINE FUMARATE
     Indication: DEMENTIA
     Dosage: 25 MG, QD
     Route: 048
     Dates: start: 20140902, end: 20150423
  5. PROMETAX [Suspect]
     Active Substance: RIVASTIGMINE
     Indication: DEMENTIA
     Dosage: 4.5 MG, QD
     Route: 048
     Dates: start: 201402, end: 20150429

REACTIONS (4)
  - Depressed level of consciousness [Recovered/Resolved]
  - Drug interaction [None]
  - Syncope [None]
  - Somnolence [Recovered/Resolved]

NARRATIVE: CASE EVENT DATE: 20150428
